FAERS Safety Report 20867206 (Version 1)
Quarter: 2022Q2

REPORT INFORMATION
  Report Type: Spontaneous
  Country: US (occurrence: US)
  Receive Date: 20220524
  Receipt Date: 20220524
  Transmission Date: 20220721
  Serious: Yes (Other)
  Sender: FDA-Public Use
  Company Number: US-SA-SAC20220523000191

PATIENT
  Sex: Female

DRUGS (4)
  1. DUPIXENT [Suspect]
     Active Substance: DUPILUMAB
     Indication: Dermatitis atopic
     Dosage: 300 MG, QOW
     Route: 058
     Dates: start: 201908
  2. IRON [Concomitant]
     Active Substance: IRON
  3. METHIMAZOLE [Concomitant]
     Active Substance: METHIMAZOLE
  4. ATENOLOL [Concomitant]
     Active Substance: ATENOLOL

REACTIONS (1)
  - Basedow^s disease [Unknown]
